FAERS Safety Report 19028737 (Version 2)
Quarter: 2021Q2

REPORT INFORMATION
  Report Type: Spontaneous
  Country: US (occurrence: US)
  Receive Date: 20210319
  Receipt Date: 20210512
  Transmission Date: 20210717
  Serious: No
  Sender: FDA-Public Use
  Company Number: US-TOLMAR, INC.-21US025909

PATIENT
  Age: 13 Year
  Sex: Male

DRUGS (1)
  1. FENSOLVI [Suspect]
     Active Substance: LEUPROLIDE ACETATE
     Indication: GENDER DYSPHORIA
     Dosage: 45 MG
     Route: 065
     Dates: start: 20210308

REACTIONS (5)
  - Wrong technique in product usage process [Unknown]
  - Syringe issue [Unknown]
  - Off label use [Unknown]
  - Intercepted product preparation error [Unknown]
  - Device leakage [Unknown]

NARRATIVE: CASE EVENT DATE: 20210308
